FAERS Safety Report 12421423 (Version 1)
Quarter: 2016Q2

REPORT INFORMATION
  Report Type: Spontaneous
  Country: DE (occurrence: JP)
  Receive Date: 20160531
  Receipt Date: 20160531
  Transmission Date: 20160815
  Serious: Yes (Hospitalization)
  Sender: FDA-Public Use
  Company Number: JP-FRI-1000084202

PATIENT
  Age: 94 Year
  Sex: Male
  Weight: 55 kg

DRUGS (12)
  1. MEMANTINE. [Suspect]
     Active Substance: MEMANTINE
     Dosage: 5 MG
     Route: 048
     Dates: start: 20160330, end: 20160405
  2. MEMANTINE. [Suspect]
     Active Substance: MEMANTINE
     Dosage: 10 MG
     Route: 048
     Dates: start: 20160406
  3. URITOS [Concomitant]
     Active Substance: IMIDAFENACIN
     Dates: start: 20160215
  4. MEMANTINE. [Suspect]
     Active Substance: MEMANTINE
     Dosage: 20 MG
     Route: 048
     Dates: start: 20160314, end: 20160318
  5. AMLODIN [Concomitant]
     Active Substance: AMLODIPINE BESYLATE
     Dates: start: 20160215
  6. JANUVIA [Concomitant]
     Active Substance: SITAGLIPTIN PHOSPHATE
     Dates: start: 20160215
  7. MEMANTINE. [Suspect]
     Active Substance: MEMANTINE
     Dosage: 10 MG
     Route: 048
     Dates: start: 20160222, end: 20160306
  8. MEMANTINE. [Suspect]
     Active Substance: MEMANTINE
     Dosage: 60 MG
  9. AVOLVE [Concomitant]
     Active Substance: DUTASTERIDE
     Dates: start: 20160215
  10. MEMANTINE. [Suspect]
     Active Substance: MEMANTINE
     Dosage: 15 MG
     Route: 048
     Dates: start: 20160307, end: 20160313
  11. FLIVAS [Concomitant]
     Active Substance: NAFTOPIDIL
     Dates: start: 20160215
  12. MEMANTINE. [Suspect]
     Active Substance: MEMANTINE
     Indication: DEMENTIA ALZHEIMER^S TYPE
     Dosage: 5 MG
     Route: 048
     Dates: start: 20160215, end: 20160221

REACTIONS (4)
  - Dizziness [Recovered/Resolved]
  - Urinary incontinence [Recovering/Resolving]
  - White blood cell count increased [Recovering/Resolving]
  - Accidental overdose [Unknown]

NARRATIVE: CASE EVENT DATE: 20160316
